FAERS Safety Report 7232036-X (Version None)
Quarter: 2011Q1

REPORT INFORMATION
  Report Type: 
  Country: None (occurrence: None)
  Receive Date: 20110118
  Receipt Date: 20061113
  Transmission Date: 20110831
  Serious: Yes (Other)
  Sender: FDA-Public Use
  Company Number: PHHY2006MX02753

PATIENT
  Sex: Female

DRUGS (3)
  1. TEGRETOL [Suspect]
     Dosage: 6 TAB (200 MG) /DAILY
     Route: 048
  2. VIGABATRIN [Concomitant]
     Dosage: 2 DF, QD
     Route: 048
  3. TEGRETOL [Suspect]
     Indication: EPILEPSY
     Dosage: 400 MG, QD
     Route: 048
     Dates: start: 19890101

REACTIONS (4)
  - CONSTIPATION [None]
  - IRRITABLE BOWEL SYNDROME [None]
  - COLITIS [None]
  - GASTRITIS [None]
